FAERS Safety Report 13121306 (Version 1)
Quarter: 2017Q1

REPORT INFORMATION
  Report Type: Spontaneous
  Country: CA (occurrence: CA)
  Receive Date: 20170117
  Receipt Date: 20170117
  Transmission Date: 20170428
  Serious: Yes (Other)
  Sender: FDA-Public Use
  Company Number: CA-SA-2017SA006034

PATIENT
  Age: 71 Year
  Sex: Female

DRUGS (14)
  1. METHOTREXATE SODIUM. [Suspect]
     Active Substance: METHOTREXATE SODIUM
     Indication: RHEUMATOID ARTHRITIS
     Dosage: QWK.
     Route: 048
     Dates: start: 200210
  2. VITAMIN D [Concomitant]
     Active Substance: CHOLECALCIFEROL
     Route: 065
  3. COVERSYL [Concomitant]
     Active Substance: PERINDOPRIL
     Route: 065
     Dates: start: 201606
  4. ERGOCALCIFEROL. [Concomitant]
     Active Substance: ERGOCALCIFEROL
     Route: 065
  5. HUMIRA [Suspect]
     Active Substance: ADALIMUMAB
     Route: 065
     Dates: start: 201303, end: 201309
  6. ENBREL [Suspect]
     Active Substance: ETANERCEPT
     Indication: RHEUMATOID ARTHRITIS
     Route: 058
     Dates: start: 200503, end: 2013
  7. METHOTREXATE SODIUM. [Suspect]
     Active Substance: METHOTREXATE SODIUM
     Indication: RHEUMATOID ARTHRITIS
     Dosage: QWEEK.
     Route: 048
     Dates: start: 201208
  8. METHOTREXATE SODIUM. [Suspect]
     Active Substance: METHOTREXATE SODIUM
     Indication: RHEUMATOID ARTHRITIS
     Dosage: QWK.
     Route: 048
  9. PLAQUENIL [Suspect]
     Active Substance: HYDROXYCHLOROQUINE SULFATE
     Route: 065
  10. SULFASALAZINE. [Suspect]
     Active Substance: SULFASALAZINE
     Indication: RHEUMATOID ARTHRITIS
     Route: 048
  11. ORENCIA [Suspect]
     Active Substance: ABATACEPT
     Dosage: EVERY 4 WEEK.
     Route: 042
     Dates: start: 201405, end: 20160606
  12. ARAVA [Suspect]
     Active Substance: LEFLUNOMIDE
     Route: 048
  13. CIMZIA [Suspect]
     Active Substance: CERTOLIZUMAB PEGOL
     Route: 065
     Dates: start: 201311, end: 201404
  14. LEUCOVORIN. [Concomitant]
     Active Substance: LEUCOVORIN
     Route: 065

REACTIONS (16)
  - Depression [Unknown]
  - Anxiety [Unknown]
  - Blood pressure fluctuation [Unknown]
  - Foot operation [Unknown]
  - Therapeutic response decreased [Unknown]
  - Drug ineffective [Unknown]
  - Headache [Unknown]
  - Rheumatoid arthritis [Unknown]
  - Osteoarthritis [Unknown]
  - Hyperhidrosis [Unknown]
  - Palpitations [Unknown]
  - Finger deformity [Unknown]
  - Joint swelling [Unknown]
  - Affect lability [Unknown]
  - Nausea [Unknown]
  - Night sweats [Unknown]

NARRATIVE: CASE EVENT DATE: 2013
